FAERS Safety Report 5867009-2 (Version None)
Quarter: 2008Q3

REPORT INFORMATION
  Report Type: 
  Country: None (occurrence: None)
  Receive Date: 20080902
  Receipt Date: 20080827
  Transmission Date: 20090109
  Serious: Yes (Hospitalization)
  Sender: FDA-Public Use
  Company Number: A0744689A

PATIENT
  Age: 70 Year
  Sex: Female

DRUGS (7)
  1. LAMICTAL [Suspect]
     Indication: BIPOLAR DISORDER
     Dosage: 100MG PER DAY
     Route: 048
     Dates: start: 20050101
  2. SEROQUEL [Suspect]
     Indication: DRUG USE FOR UNKNOWN INDICATION
  3. LOPRESSOR [Concomitant]
  4. CALCIUM [Concomitant]
  5. PRILOSEC [Concomitant]
  6. SEROQUEL [Concomitant]
  7. ATIVAN [Concomitant]

REACTIONS (5)
  - APATHY [None]
  - FEELING ABNORMAL [None]
  - HALLUCINATION, AUDITORY [None]
  - HALLUCINATION, VISUAL [None]
  - TENSION [None]
